FAERS Safety Report 14380125 (Version 5)
Quarter: 2018Q2

REPORT INFORMATION
  Report Type: Report from Study
  Country: CH (occurrence: CH)
  Receive Date: 20180112
  Receipt Date: 20180515
  Transmission Date: 20180711
  Serious: Yes (Hospitalization)
  Sender: FDA-Public Use
  Company Number: CH-CELGENEUS-CHE-20180100020

PATIENT
  Age: 36 Year
  Sex: Male
  Weight: 113.5 kg

DRUGS (24)
  1. CONCOR [Concomitant]
     Active Substance: BISOPROLOL FUMARATE
     Indication: ATRIAL FLUTTER
     Dosage: .75 TABLET
     Route: 048
  2. ZESTRIL [Concomitant]
     Active Substance: LISINOPRIL
     Indication: PULMONARY VALVE STENOSIS
  3. DEANXIT [Concomitant]
     Active Substance: FLUPENTIXOL DIHYDROCHLORIDE\MELITRACEN HYDROCHLORIDE
     Indication: DEPRESSION
     Dosage: 1 DF = 0.5 MG FLUPENTIXOL, 10 MG MELITRACEN
     Route: 048
  4. DEANXIT [Concomitant]
     Active Substance: FLUPENTIXOL DIHYDROCHLORIDE\MELITRACEN HYDROCHLORIDE
     Route: 048
  5. XARELTO [Concomitant]
     Active Substance: RIVAROXABAN
     Indication: ANTICOAGULANT THERAPY
     Dosage: 20 MILLIGRAM
     Route: 048
     Dates: start: 20160404
  6. VIREAD [Concomitant]
     Active Substance: TENOFOVIR DISOPROXIL FUMARATE
     Indication: HEPATIC FIBROSIS
     Dosage: 245 MILLIGRAM
     Route: 048
     Dates: start: 201305
  7. ZESTRIL [Concomitant]
     Active Substance: LISINOPRIL
     Indication: CARDIAC DISORDER
     Dosage: 60 MILLIMOLE
     Route: 048
  8. ZESTRIL [Concomitant]
     Active Substance: LISINOPRIL
     Indication: VENTRICULAR SEPTAL DEFECT
  9. LISINOPRIL SPIRIG [Concomitant]
     Active Substance: LISINOPRIL
     Indication: ANTICOAGULANT THERAPY
     Dosage: 20 MILLIGRAM
     Route: 048
  10. LISINOPRIL SPIRIG [Concomitant]
     Active Substance: LISINOPRIL
     Indication: CARDIAC DISORDER
  11. BISOPROLOL MEPHA [Concomitant]
     Indication: PRODUCT USED FOR UNKNOWN INDICATION
     Dosage: 7.5 MILLIGRAM
     Route: 048
  12. MAGNESIOCARD [Concomitant]
     Active Substance: MAGNESIUM ASPARTATE HYDROCHLORIDE
     Indication: ELECTROLYTE IMBALANCE
     Dosage: 10 MILLIMOLE
     Route: 048
     Dates: start: 20171104
  13. WELLBUTRIN XL [Concomitant]
     Active Substance: BUPROPION HYDROCHLORIDE
     Indication: PRODUCT USED FOR UNKNOWN INDICATION
     Dosage: 600 MILLIGRAM
     Route: 048
  14. DOSTINEX [Concomitant]
     Active Substance: CABERGOLINE
     Indication: PROLACTIN-PRODUCING PITUITARY TUMOUR
     Dosage: .5 MILLIGRAM
     Route: 048
     Dates: start: 201611
  15. FLUOXETIN ACTAVIS [Concomitant]
     Active Substance: FLUOXETINE HYDROCHLORIDE
     Indication: PRODUCT USED FOR UNKNOWN INDICATION
     Dosage: 20 MILLIGRAM
     Route: 048
  16. OTEZLA [Suspect]
     Active Substance: APREMILAST
     Indication: PSORIASIS
     Dosage: 30 MILLIGRAM
     Route: 048
     Dates: start: 201703
  17. XARELTO [Concomitant]
     Active Substance: RIVAROXABAN
     Indication: ATRIAL FLUTTER
  18. VIREAD [Concomitant]
     Active Substance: TENOFOVIR DISOPROXIL FUMARATE
     Indication: HEPATITIS
  19. BISOPROLOL MEPHA [Concomitant]
     Dosage: 10 MILLIGRAM
     Route: 048
  20. BELOC [Concomitant]
     Active Substance: METOPROLOL TARTRATE
     Indication: PRODUCT USED FOR UNKNOWN INDICATION
     Route: 041
  21. OTEZLA [Suspect]
     Active Substance: APREMILAST
     Dosage: 30 MILLIGRAM
     Route: 048
     Dates: start: 20170608
  22. ZESTRIL [Concomitant]
     Active Substance: LISINOPRIL
     Indication: TRANSPOSITION OF THE GREAT VESSELS
  23. TENOFOVIR [Concomitant]
     Active Substance: TENOFOVIR
     Indication: PROPHYLAXIS
     Route: 065
  24. CONCOR [Concomitant]
     Active Substance: BISOPROLOL FUMARATE
     Indication: ANTICOAGULANT THERAPY
     Dosage: 10 MILLIGRAM
     Route: 048

REACTIONS (5)
  - Atrial tachycardia [Recovered/Resolved]
  - Tachycardia [Recovered/Resolved]
  - Atrial tachycardia [Recovered/Resolved]
  - Tachycardia [Recovered/Resolved]
  - Tachycardia [Recovered/Resolved]

NARRATIVE: CASE EVENT DATE: 20170826
